FAERS Safety Report 9769232 (Version 2)
Quarter: 2013Q4

REPORT INFORMATION
  Report Type: Spontaneous
  Country: US (occurrence: US)
  Receive Date: 20131218
  Receipt Date: 20131227
  Transmission Date: 20140711
  Serious: Yes (Hospitalization, Other)
  Sender: FDA-Public Use
  Company Number: US-CELGENEUS-163-21880-13120807

PATIENT
  Age: 80 Year
  Sex: Male
  Weight: 74.46 kg

DRUGS (2)
  1. REVLIMID [Suspect]
     Indication: PLASMA CELL MYELOMA
     Dosage: 25 MILLIGRAM
     Route: 048
     Dates: start: 201206
  2. REVLIMID [Suspect]
     Dosage: 25 MILLIGRAM
     Route: 048
     Dates: start: 201309

REACTIONS (6)
  - Delusional disorder, unspecified type [Not Recovered/Not Resolved]
  - Gout [Not Recovered/Not Resolved]
  - Pain [Recovered/Resolved]
  - Chest pain [Not Recovered/Not Resolved]
  - Back pain [Not Recovered/Not Resolved]
  - Weight decreased [Not Recovered/Not Resolved]
